FAERS Safety Report 18731762 (Version 1)
Quarter: 2021Q1

REPORT INFORMATION
  Report Type: Spontaneous
  Country: CN (occurrence: CN)
  Receive Date: 20210112
  Receipt Date: 20210112
  Transmission Date: 20210419
  Serious: Yes (Other)
  Sender: FDA-Public Use
  Company Number: CN-GLAXOSMITHKLINE-CN2020APC247143

PATIENT
  Age: 33 Year
  Sex: Female

DRUGS (1)
  1. VENTOLIN [Suspect]
     Active Substance: ALBUTEROL SULFATE
     Indication: BRONCHITIS
     Dosage: 2.50 ML
     Route: 055
     Dates: start: 20201206, end: 20201206

REACTIONS (3)
  - Cardiac flutter [Recovered/Resolved]
  - Blood pressure abnormal [Recovered/Resolved]
  - Heart rate abnormal [Recovered/Resolved]

NARRATIVE: CASE EVENT DATE: 20201206
